FAERS Safety Report 13657754 (Version 5)
Quarter: 2020Q2

REPORT INFORMATION
  Report Type: Spontaneous
  Country: US (occurrence: US)
  Receive Date: 20170615
  Receipt Date: 20200529
  Transmission Date: 20200713
  Serious: Yes (Other)
  Sender: FDA-Public Use
  Company Number: US-AMGEN-USASP2017087761

PATIENT
  Age: 65 Year
  Sex: Female
  Weight: 78.92 kg

DRUGS (63)
  1. NEURONTIN [Concomitant]
     Active Substance: GABAPENTIN
     Dosage: 300 MILLIGRAM, TID
     Route: 048
  2. AROMASIN [Concomitant]
     Active Substance: EXEMESTANE
     Dosage: UNK
  3. SIMVASTATIN. [Concomitant]
     Active Substance: SIMVASTATIN
  4. CIPRO [Concomitant]
     Active Substance: CIPROFLOXACIN HYDROCHLORIDE
     Dosage: 500 MILLIGRAM
  5. SENOKOT [Concomitant]
     Active Substance: SENNOSIDES
     Dosage: 8.6 MILLIGRAM, BID
  6. VALTREX [Concomitant]
     Active Substance: VALACYCLOVIR HYDROCHLORIDE
     Dosage: 500 MILLIGRAM, QD
     Route: 048
  7. HUMALOG [Concomitant]
     Active Substance: INSULIN LISPRO
  8. HEPARIN [Concomitant]
     Active Substance: HEPARIN SODIUM
  9. NORCO [Concomitant]
     Active Substance: ACETAMINOPHEN\HYDROCODONE BITARTRATE
  10. MORPHINE [Concomitant]
     Active Substance: MORPHINE
     Indication: PAIN
     Dosage: 15 MILLIGRAM
  11. MEDROL [Concomitant]
     Active Substance: METHYLPREDNISOLONE
     Dosage: UNK
  12. AMARYL [Concomitant]
     Active Substance: GLIMEPIRIDE
     Dosage: 4 MILLIGRAM, QD
     Route: 048
  13. PRANDIN [REPAGLINIDE] [Concomitant]
     Dosage: 2 MILLIGRAM
  14. DEXTROSE. [Concomitant]
     Active Substance: DEXTROSE
  15. FISH OIL [Concomitant]
     Active Substance: FISH OIL
     Dosage: 1000 MILLIGRAM
     Route: 048
  16. MS CONTIN [Concomitant]
     Active Substance: MORPHINE SULFATE
     Indication: PAIN
     Dosage: 15 MILLIGRAM
  17. XGEVA [Suspect]
     Active Substance: DENOSUMAB
     Indication: METASTASES TO BONE
     Dosage: 120 MILLIGRAM PER 1.7 MILLILITRE, QMO
     Route: 058
     Dates: start: 2012, end: 2015
  18. JANUVIA [Concomitant]
     Active Substance: SITAGLIPTIN PHOSPHATE
     Dosage: 50 MILLIGRAM, TA
  19. VITAMINE D [Concomitant]
     Active Substance: CHOLECALCIFEROL
     Dosage: 50000 INTERNATIONAL UNIT, QWK
  20. IBUPROFEN. [Concomitant]
     Active Substance: IBUPROFEN
  21. ZANAFLEX [Concomitant]
     Active Substance: TIZANIDINE HYDROCHLORIDE
     Dosage: 2 MILLIGRAM, TID
  22. COLACE [Concomitant]
     Active Substance: DOCUSATE SODIUM
     Dosage: 100 MILLIGRAM, BID
     Route: 048
  23. ARTIFICIAL TEARS [HYPROMELLOSE] [Concomitant]
     Dosage: UNK
  24. XELODA [Concomitant]
     Active Substance: CAPECITABINE
  25. FLONASE [Concomitant]
     Active Substance: FLUTICASONE PROPIONATE
  26. OMEPRAZOLE. [Concomitant]
     Active Substance: OMEPRAZOLE
     Dosage: 20 MILLIGRAM
  27. NYSTATIN. [Concomitant]
     Active Substance: NYSTATIN
     Dosage: UNK
  28. EC-NAPROSYN [Concomitant]
     Active Substance: NAPROXEN
  29. METFORMIN HCL [Concomitant]
     Active Substance: METFORMIN HYDROCHLORIDE
     Dosage: UNK UNK, BID (2 PILLS)
  30. LEVEMIR [Concomitant]
     Active Substance: INSULIN DETEMIR
     Dosage: 100 MICROGRAM
  31. FLEXERIL [Concomitant]
     Active Substance: CYCLOBENZAPRINE HYDROCHLORIDE
  32. AVASTIN [Concomitant]
     Active Substance: BEVACIZUMAB
  33. ROXICODONE [Concomitant]
     Active Substance: OXYCODONE HYDROCHLORIDE
  34. NAPROXEN. [Concomitant]
     Active Substance: NAPROXEN
  35. CALCIUM [Concomitant]
     Active Substance: CALCIUM
     Dosage: UNK
  36. MVI [VITAMINS NOS] [Concomitant]
     Dosage: UNK
  37. FASLODEX [Concomitant]
     Active Substance: FULVESTRANT
  38. PRILOSEC [Concomitant]
     Active Substance: OMEPRAZOLE MAGNESIUM
     Dosage: 20 MILLIGRAM, QD
     Route: 048
  39. AUGMENTINE [AMOXICILLIN;CLAVULANIC ACID] [Concomitant]
     Active Substance: AMOXICILLIN\CLAVULANIC ACID
     Dosage: UNK MILLIGRAM, BID
     Route: 048
  40. TRESIBA [Concomitant]
     Active Substance: INSULIN DEGLUDEC
  41. ULTRAME [Concomitant]
     Active Substance: TRAMADOL HYDROCHLORIDE
  42. LEXAPRO [Concomitant]
     Active Substance: ESCITALOPRAM OXALATE
     Dosage: 10 MILLIGRAM
  43. FML FORTE [Concomitant]
     Active Substance: FLUOROMETHOLONE
     Dosage: UNK
     Route: 047
  44. ONDANSETRON [Concomitant]
     Active Substance: ONDANSETRON
     Dosage: 4 MILLIGRAM
  45. CYMBALTA [Concomitant]
     Active Substance: DULOXETINE HYDROCHLORIDE
  46. TRAMADOL HCL [Concomitant]
     Active Substance: TRAMADOL HYDROCHLORIDE
     Indication: PAIN
     Dosage: UNK (1-2 TABLETS, EVERY SIX HOURS)
     Route: 048
  47. SYNTHROID [Concomitant]
     Active Substance: LEVOTHYROXINE SODIUM
     Dosage: 25 MICROGRAM
  48. CALCIUM + D3 [CALCIUM;COLECALCIFEROL] [Concomitant]
     Dosage: UNK UNK, QD
     Route: 048
  49. REVLIMID [Concomitant]
     Active Substance: LENALIDOMIDE
     Dosage: UNK
  50. VIBRAMYCIN [Concomitant]
     Active Substance: DOXYCYCLINE
  51. TYLENOL [Concomitant]
     Active Substance: ACETAMINOPHEN
  52. DILAUDID [Concomitant]
     Active Substance: HYDROMORPHONE HYDROCHLORIDE
  53. VOLTAREN [DICLOFENAC] [Concomitant]
     Active Substance: DICLOFENAC SODIUM
     Dosage: UNK MILLIGRAM
  54. FEMARA [Concomitant]
     Active Substance: LETROZOLE
  55. FLAREX [Concomitant]
     Active Substance: FLUOROMETHOLONE ACETATE
  56. TAMOXIFEN CITRATE. [Concomitant]
     Active Substance: TAMOXIFEN CITRATE
     Dosage: UNK UNK, BID (1 TABLET)
     Dates: start: 201112
  57. PERIDEX [CHLORHEXIDINE GLUCONATE] [Concomitant]
     Dosage: UNK
  58. HYDROQUINONE. [Concomitant]
     Active Substance: HYDROQUINONE
  59. ASPIRINE [Concomitant]
     Active Substance: ASPIRIN
  60. ZYLOPRIM [Concomitant]
     Active Substance: ALLOPURINOL
     Dosage: 300 MILLIGRAM, QD
     Route: 048
  61. GLUCOSE [Concomitant]
     Active Substance: DEXTROSE
  62. GLUCAGON. [Concomitant]
     Active Substance: GLUCAGON
     Dosage: UNK
  63. LIDODERM [Concomitant]
     Active Substance: LIDOCAINE
     Dosage: UNK

REACTIONS (26)
  - Thoracic vertebral fracture [Unknown]
  - Neuropathy peripheral [Unknown]
  - Quality of life decreased [Unknown]
  - Condition aggravated [Unknown]
  - Pulmonary arterial hypertension [Unknown]
  - Diverticulum intestinal [Unknown]
  - Non-Hodgkin^s lymphoma [Unknown]
  - Cardiomegaly [Unknown]
  - Road traffic accident [Unknown]
  - Fall [Unknown]
  - Skin laceration [Unknown]
  - Ovarian cyst [Unknown]
  - Bone loss [Unknown]
  - Loose tooth [Unknown]
  - Periarthritis [Unknown]
  - Metastases to neck [Unknown]
  - Osteonecrosis of jaw [Not Recovered/Not Resolved]
  - Emotional distress [Unknown]
  - Cataract nuclear [Unknown]
  - Gingival erosion [Unknown]
  - Tooth loss [Unknown]
  - Gingival bleeding [Unknown]
  - Nephrolithiasis [Unknown]
  - Tooth disorder [Unknown]
  - Gout [Unknown]
  - Impaired healing [Unknown]

NARRATIVE: CASE EVENT DATE: 20121012
